FAERS Safety Report 6468938-1 (Version None)
Quarter: 2009Q4

REPORT INFORMATION
  Report Type: 
  Country: None (occurrence: None)
  Receive Date: 20091203
  Receipt Date: 20080303
  Transmission Date: 20100525
  Serious: Yes (Hospitalization)
  Sender: FDA-Public Use
  Company Number: US-ELI_LILLY_AND_COMPANY-US200601000847

PATIENT
  Sex: Male
  Weight: 95.238 kg

DRUGS (12)
  1. ZYPREXA [Suspect]
     Indication: DEPRESSION
     Dates: start: 19960101, end: 19980101
  2. MEVACOR [Concomitant]
     Indication: BLOOD CHOLESTEROL
     Dosage: 20 MG, QOD
     Dates: end: 19970306
  3. MEVACOR [Concomitant]
     Dosage: 20 MG, DAILY (1/D)
     Dates: start: 19970307
  4. CARDIZEM [Concomitant]
     Dosage: 180 MG, QOD
     Dates: end: 19970306
  5. CARDIZEM [Concomitant]
     Dosage: 180 MG, DAILY (1/D)
     Dates: start: 19970307
  6. ASPIRIN [Concomitant]
     Dosage: 325 MG, QOD
     Dates: end: 19970306
  7. ASPIRIN [Concomitant]
     Dosage: 325 MG, DAILY (1/D)
     Dates: start: 19970307
  8. AMITRIPTYLINE [Concomitant]
     Dosage: 25 MG, DAILY (1/D)
     Dates: end: 19971008
  9. NITRO-DUR [Concomitant]
     Dosage: 0.2 MG, DAILY (1/D)
     Dates: end: 19970219
  10. NITROGLYCERIN [Concomitant]
     Dosage: 0.4 MG, AS NEEDED
     Route: 060
     Dates: start: 19971008
  11. ZOLOFT [Concomitant]
     Dosage: 112.5 MG, DAILY (1/D)
     Dates: end: 19971008
  12. VIAGRA [Concomitant]
     Dosage: UNK, AS NEEDED

REACTIONS (4)
  - ANGINA UNSTABLE [None]
  - HYPERLIPIDAEMIA [None]
  - PAIN [None]
  - TYPE 2 DIABETES MELLITUS [None]
